FAERS Safety Report 6258476-3 (Version None)
Quarter: 2009Q3

REPORT INFORMATION
  Report Type: 
  Country: None (occurrence: None)
  Receive Date: 20090707
  Receipt Date: 20090625
  Transmission Date: 20100115
  Serious: Yes (Other)
  Sender: FDA-Public Use
  Company Number: AU-PFIZER INC-2009231820

PATIENT
  Age: 25 Year

DRUGS (1)
  1. ALDACTONE [Suspect]
     Indication: ACNE
     Dosage: 100 MG, 1X/DAY

REACTIONS (1)
  - SYNCOPE [None]
